FAERS Safety Report 25324128 (Version 1)
Quarter: 2025Q2

REPORT INFORMATION
  Report Type: Spontaneous
  Country: US (occurrence: None)
  Receive Date: 20250515
  Receipt Date: 20250515
  Transmission Date: 20250716
  Serious: Yes (Other)
  Sender: FDA-CTU
  Company Number: None

PATIENT
  Age: 40 Year
  Sex: Female
  Weight: 56.25 kg

DRUGS (2)
  1. XEMBIFY [Suspect]
     Active Substance: HUMAN IMMUNOGLOBULIN G
     Indication: Primary immunodeficiency syndrome
     Route: 058
     Dates: start: 20240726
  2. XEMBIFY [Suspect]
     Active Substance: HUMAN IMMUNOGLOBULIN G
     Indication: Primary immunodeficiency syndrome
     Route: 058
     Dates: start: 20240726

REACTIONS (2)
  - Injection site urticaria [None]
  - Pruritus [None]

NARRATIVE: CASE EVENT DATE: 20250224
